FAERS Safety Report 4672430-4 (Version None)
Quarter: 2005Q2

REPORT INFORMATION
  Report Type: 
  Country: None (occurrence: None)
  Receive Date: 20050520
  Receipt Date: 20050520
  Transmission Date: 20051028
  Serious: Yes (Other)
  Sender: FDA-Public Use
  Company Number: None

PATIENT
  Age: 34 Year
  Sex: Female
  Weight: 67.1324 kg

DRUGS (1)
  1. FENTANYL [Suspect]
     Dosage: TRANSDERMAL PATCH Q 72 H
     Route: 062
     Dates: start: 20050329

REACTIONS (4)
  - MIGRAINE [None]
  - NAUSEA [None]
  - PHARMACEUTICAL PRODUCT COMPLAINT [None]
  - VOMITING [None]
